FAERS Safety Report 6714880-8 (Version None)
Quarter: 2010Q2

REPORT INFORMATION
  Report Type: 
  Country: None (occurrence: None)
  Receive Date: 20100507
  Receipt Date: 20100426
  Transmission Date: 20101027
  Serious: Yes (Other)
  Sender: FDA-Public Use
  Company Number: US-BAYER-201020684NA

PATIENT
  Sex: Female

DRUGS (3)
  1. MIRENA [Suspect]
     Indication: DRUG USE FOR UNKNOWN INDICATION
     Route: 015
  2. MIRENA [Suspect]
     Dosage: UNKNOWN DATES/ DURATION
     Route: 015
  3. MIRENA [Suspect]
     Dosage: UNKNOWN DATES/ DURATION
     Route: 015

REACTIONS (1)
  - BREAST CANCER FEMALE [None]
